FAERS Safety Report 24301163 (Version 1)
Quarter: 2024Q3

REPORT INFORMATION
  Report Type: Spontaneous
  Country: US (occurrence: US)
  Receive Date: 20240910
  Receipt Date: 20240910
  Transmission Date: 20241017
  Serious: No
  Sender: ELI LILLY AND CO
  Company Number: US-ELI_LILLY_AND_COMPANY-US202409004332

PATIENT
  Age: 51 Year
  Sex: Female

DRUGS (1)
  1. VERZENIO [Suspect]
     Active Substance: ABEMACICLIB
     Indication: Breast cancer metastatic
     Dosage: 100 MG, UNKNOWN
     Route: 065

REACTIONS (4)
  - Hepatic pain [Unknown]
  - Hepatic enzyme increased [Unknown]
  - Tumour marker abnormal [Unknown]
  - Drug ineffective [Unknown]
